FAERS Safety Report 19331719 (Version 1)
Quarter: 2021Q2

REPORT INFORMATION
  Report Type: Other
  Country: GR (occurrence: GR)
  Receive Date: 20210529
  Receipt Date: 20210529
  Transmission Date: 20210717
  Serious: Yes (Life-Threatening, Hospitalization)
  Sender: FDA-Public Use
  Company Number: GR-ROCHE-2838827

PATIENT
  Age: 76 Year
  Sex: Female

DRUGS (10)
  1. ENTECAVIR. [Concomitant]
     Active Substance: ENTECAVIR
     Indication: CHRONIC HEPATITIS B
     Dosage: UNK
     Route: 065
  2. SULBACTAM [Concomitant]
     Active Substance: SULBACTAM
     Indication: PNEUMOCYSTIS JIROVECII INFECTION
     Dosage: UNK
     Route: 065
  3. LINEZOLID. [Concomitant]
     Active Substance: LINEZOLID
     Indication: PNEUMOCYSTIS JIROVECII INFECTION
     Dosage: UNK
     Route: 065
  4. RITUXIMAB. [Suspect]
     Active Substance: RITUXIMAB
     Indication: MIXED CONNECTIVE TISSUE DISEASE
     Route: 065
     Dates: start: 20210120
  5. DEXAMETHASONE. [Concomitant]
     Active Substance: DEXAMETHASONE
     Indication: PNEUMOCYSTIS JIROVECII INFECTION
     Dosage: UNK
     Route: 065
  6. MEDROL [Concomitant]
     Active Substance: METHYLPREDNISOLONE
     Indication: MIXED CONNECTIVE TISSUE DISEASE
     Dosage: UNK (DOSE REDUCED)
     Route: 065
  7. MEDROL [Concomitant]
     Active Substance: METHYLPREDNISOLONE
     Dosage: UNK
     Route: 065
  8. TOCILIZUMAB. [Concomitant]
     Active Substance: TOCILIZUMAB
     Indication: HYPOGAMMAGLOBULINAEMIA
     Dosage: UNK
     Route: 065
  9. TRIMETHOPRIM. [Concomitant]
     Active Substance: TRIMETHOPRIM
     Indication: PNEUMOCYSTIS JIROVECII INFECTION
     Dosage: UNK
     Route: 065
  10. MEROPENEM. [Concomitant]
     Active Substance: MEROPENEM
     Indication: PNEUMOCYSTIS JIROVECII INFECTION
     Dosage: UNK
     Route: 065

REACTIONS (2)
  - COVID-19 [Recovering/Resolving]
  - Off label use [Unknown]

NARRATIVE: CASE EVENT DATE: 20210227
